FAERS Safety Report 7238341-5 (Version None)
Quarter: 2011Q1

REPORT INFORMATION
  Report Type: 
  Country: None (occurrence: None)
  Receive Date: 20110121
  Receipt Date: 20110114
  Transmission Date: 20110831
  Serious: Yes (Hospitalization, Other)
  Sender: FDA-Public Use
  Company Number: FR-BRISTOL-MYERS SQUIBB COMPANY-15489768

PATIENT
  Age: 83 Year
  Sex: Male

DRUGS (2)
  1. QUESTRAN [Suspect]
     Dosage: 1 DF: 2 SACHETS
     Dates: start: 19771101
  2. ANTIVITAMIN K [Suspect]

REACTIONS (6)
  - MUSCULAR WEAKNESS [None]
  - PULMONARY EMBOLISM [None]
  - THERAPEUTIC RESPONSE UNEXPECTED [None]
  - THYMOMA [None]
  - INTERNATIONAL NORMALISED RATIO DECREASED [None]
  - DRUG ADMINISTRATION ERROR [None]
